FAERS Safety Report 9649265 (Version 1)
Quarter: 2013Q4

REPORT INFORMATION
  Report Type: Spontaneous
  Country: US (occurrence: US)
  Receive Date: 20131028
  Receipt Date: 20131028
  Transmission Date: 20140711
  Serious: Yes (Death)
  Sender: FDA-Public Use
  Company Number: US-GLAXOSMITHKLINE-A1047197A

PATIENT
  Age: 82 Year
  Sex: Male

DRUGS (14)
  1. VOTRIENT [Suspect]
     Indication: RENAL CANCER
     Dosage: 800MG PER DAY
     Route: 048
     Dates: start: 20130822
  2. AMBIEN [Concomitant]
  3. VITAMIN E [Concomitant]
  4. SIMVASTATIN [Concomitant]
  5. METROGEL [Concomitant]
  6. LISINOPRIL [Concomitant]
  7. SYNTHROID [Concomitant]
  8. FOLIC ACID [Concomitant]
  9. ADVAIR [Concomitant]
  10. FELODIPINE [Concomitant]
  11. ASPIRIN [Concomitant]
  12. DUONEB [Concomitant]
  13. PROAIR HFA [Concomitant]
  14. TAMSULOSIN [Concomitant]

REACTIONS (1)
  - Death [Fatal]
